FAERS Safety Report 9823280 (Version 3)
Quarter: 2014Q1

REPORT INFORMATION
  Report Type: Spontaneous
  Country: GB (occurrence: GB)
  Receive Date: 20140116
  Receipt Date: 20140312
  Transmission Date: 20141002
  Serious: Yes (Other)
  Sender: FDA-Public Use
  Company Number: PHFR2014GB000700

PATIENT
  Age: 55 Year
  Sex: Female

DRUGS (2)
  1. GILENYA [Suspect]
     Route: 048
  2. CITALOPRAM [Concomitant]
     Indication: DEPRESSED MOOD
     Route: 048

REACTIONS (1)
  - Psoriasis [Recovered/Resolved]
